FAERS Safety Report 7220033-X (Version None)
Quarter: 2011Q1

REPORT INFORMATION
  Report Type: 
  Country: None (occurrence: None)
  Receive Date: 20110111
  Receipt Date: 20101221
  Transmission Date: 20110831
  Serious: Yes (Congenital Anomaly)
  Sender: FDA-Public Use
  Company Number: A0679863A

PATIENT
  Sex: Female

DRUGS (6)
  1. ASPIRIN [Concomitant]
  2. HEPARIN [Concomitant]
  3. PAXIL CR [Suspect]
     Indication: ANXIETY
     Dosage: 25MG PER DAY
     Dates: start: 20040111, end: 20050407
  4. LOVENOX [Concomitant]
  5. PRENATAL VITAMINS [Concomitant]
  6. PAROXETINE HYDROCHLORIDE [Suspect]
     Indication: ANXIETY
     Dosage: 30MG PER DAY
     Dates: start: 20050407, end: 20060101

REACTIONS (9)
  - PULMONARY HYPOPLASIA [None]
  - HEART DISEASE CONGENITAL [None]
  - DRUG EXPOSURE DURING PREGNANCY [None]
  - CEREBRAL VENTRICLE DILATATION [None]
  - CARDIAC DISORDER [None]
  - ABORTION INDUCED [None]
  - TRISOMY 18 [None]
  - FOETAL GROWTH RESTRICTION [None]
  - MULTIPLE CONGENITAL ABNORMALITIES [None]
